FAERS Safety Report 6074797-1 (Version None)
Quarter: 2009Q1

REPORT INFORMATION
  Report Type: 
  Country: None (occurrence: None)
  Receive Date: 20090212
  Receipt Date: 20090209
  Transmission Date: 20090719
  Serious: Yes (Other)
  Sender: FDA-Public Use
  Company Number: US-BAYER-200841374NA

PATIENT
  Age: 83 Year
  Sex: Male
  Weight: 77 kg

DRUGS (15)
  1. AVELOX [Suspect]
     Indication: LOWER RESPIRATORY TRACT INFECTION BACTERIAL
     Dates: start: 20081215, end: 20081220
  2. GUAIFENESIN [Concomitant]
  3. SIMVASTATIN [Concomitant]
  4. ATACAND [Concomitant]
  5. BETAMETHASONE DIPROPIONATE [Concomitant]
  6. ASPIRIN [Concomitant]
  7. FUROSEMIDE [Concomitant]
  8. ALBUTEROL [Concomitant]
  9. XALATAN [Concomitant]
  10. THEOPHYLLINE [Concomitant]
  11. PREVACID [Concomitant]
  12. KLOR-CON [Concomitant]
  13. ADVAIR DISKUS 100/50 [Concomitant]
  14. SPIRIVA [Concomitant]
  15. OXYGEN [Concomitant]

REACTIONS (3)
  - BLADDER NEOPLASM SURGERY [None]
  - BLOOD URINE PRESENT [None]
  - DYSURIA [None]
